FAERS Safety Report 9126484 (Version 1)
Quarter: 2013Q1

REPORT INFORMATION
  Report Type: Report from Study
  Country: US (occurrence: US)
  Receive Date: 20130121
  Receipt Date: 20130121
  Transmission Date: 20140127
  Serious: Yes (Other)
  Sender: FDA-Public Use
  Company Number: US-ABBOTT-13P-163-1035834-00

PATIENT
  Age: 51 Year
  Sex: Female

DRUGS (1)
  1. HUMIRA [Suspect]
     Indication: PSORIATIC ARTHROPATHY
     Dates: start: 2008, end: 2010

REACTIONS (6)
  - Jaw disorder [Recovering/Resolving]
  - Eye pain [Unknown]
  - Photopsia [Unknown]
  - Sjogren^s syndrome [Unknown]
  - Swelling [Unknown]
  - Vaginal haemorrhage [Unknown]
